FAERS Safety Report 7984938-4 (Version None)
Quarter: 2011Q4

REPORT INFORMATION
  Report Type: 
  Country: None (occurrence: None)
  Receive Date: 20111214
  Receipt Date: 20111130
  Transmission Date: 20120403
  Serious: Yes (Death)
  Sender: FDA-Public Use
  Company Number: 1122213

PATIENT
  Age: 76 Year
  Sex: Male
  Weight: 98 kg

DRUGS (19)
  1. ARTHROTEC [Concomitant]
  2. CISPLATIN [Concomitant]
  3. METOCLOPRAMIDE [Concomitant]
  4. CEFTRIAXONE SODIUM [Suspect]
     Indication: PRODUCT USED FOR UNKNOWN INDICATION
     Dosage: 2GM, 2 EVERY 1 DAY(S) , INTRAVENOUS (NOT OTHERWISE SPECIFIED)
     Route: 042
  5. ACETAMINOPHEN [Concomitant]
  6. LIPITOR [Concomitant]
  7. RABEPRAZOLE SODIUM [Concomitant]
  8. LANSOPRAZOLE [Concomitant]
  9. ONDANSETRON [Concomitant]
  10. OSTEO-BI-FLEX [Concomitant]
  11. FLUTICASONE FUROATE [Concomitant]
  12. CIPROFLOXACIN [Suspect]
     Indication: PRODUCT USED FOR UNKNOWN INDICATION
     Dosage: 400MG, 2 EVERY 1 DAY(S), INTRAVENOUS (NOT OTHERWISE SPECIFIED)
  13. ASPIRIN [Concomitant]
  14. DEXAMETHASONE [Concomitant]
  15. NORVASC [Concomitant]
  16. VEPESID [Suspect]
     Indication: PRODUCT USED FOR UNKNOWN INDICATION
     Dosage: 100MG/M2, 1 EVERY 1 DAY(S)
  17. ALTACE HCT [Concomitant]
  18. IPRATROPIUM BROMIDE [Concomitant]
  19. ALBUTEROL SULFATE AUTOHALER [Concomitant]

REACTIONS (1)
  - TOXIC EPIDERMAL NECROLYSIS [None]
